FAERS Safety Report 4727395-3 (Version None)
Quarter: 2005Q3

REPORT INFORMATION
  Report Type: 
  Country: None (occurrence: None)
  Receive Date: 20050726
  Receipt Date: 20050712
  Transmission Date: 20060218
  Serious: Yes (Other)
  Sender: FDA-Public Use
  Company Number: US-2005-012711

PATIENT
  Age: 24 Year
  Sex: Female
  Weight: 52.6 kg

DRUGS (10)
  1. LEUKINE VS. PLACEBO(GM-CSF (9874)) INJECTION [Suspect]
     Indication: CROHN'S DISEASE
     Dosage: 6 UG/KG, 1X/DAY, SUBCUTANEOUS
     Route: 058
     Dates: start: 20050315, end: 20050703
  2. DIFLUCAN [Concomitant]
  3. VIGAMOX (MOXIFLOXACIN HYDROCHLORIDE) [Concomitant]
  4. DEMEROL [Concomitant]
  5. PHENERGAN [Concomitant]
  6. LORTAB [Concomitant]
  7. HYCODAN /USA/ (HYDROCODONE BITARTRATE, HOMATROPINE METHYLBROMIDE) [Concomitant]
  8. PREDNISONE [Concomitant]
  9. ACTONEL [Concomitant]
  10. ASCORBIC ACID [Concomitant]

REACTIONS (7)
  - BACK PAIN [None]
  - HEADACHE [None]
  - NECK PAIN [None]
  - NERVOUS SYSTEM DISORDER [None]
  - NUCLEAR MAGNETIC RESONANCE IMAGING BRAIN ABNORMAL [None]
  - PROGRESSIVE MULTIFOCAL LEUKOENCEPHALOPATHY [None]
  - SERUM SICKNESS [None]
